FAERS Safety Report 9883230 (Version 2)
Quarter: 2014Q1

REPORT INFORMATION
  Report Type: Spontaneous
  Country: US (occurrence: US)
  Receive Date: 20140209
  Receipt Date: 20140212
  Transmission Date: 20141002
  Serious: Yes (Other)
  Sender: FDA-Public Use
  Company Number: PHEH2014US002307

PATIENT
  Sex: Male

DRUGS (16)
  1. MYFORTIC [Suspect]
     Indication: TRANSPLANT
     Dosage: 180 MG, QID
     Dates: start: 2008
  2. MYFORTIC [Suspect]
     Dosage: 720 MG, BID
     Dates: start: 2008
  3. PREDNISONE [Suspect]
     Dosage: FOR ONE AND HALF YEAR
  4. PROGRAF [Suspect]
     Dosage: ONE AND HALF YEAR
  5. RAPAMUNE [Suspect]
     Dosage: FOR ONE AND HALF YEAR
  6. CREON [Concomitant]
     Dosage: UNK UKN, UNK
  7. LYRICA [Concomitant]
     Dosage: UNK UKN, UNK
  8. TRAMADOL [Concomitant]
     Dosage: UNK UKN, UNK
  9. LEVOTHYROXINE [Concomitant]
     Dosage: UNK UKN, UNK
  10. PROPRANOLOL [Concomitant]
     Dosage: UNK UKN, UNK
  11. ALBUTEROL [Concomitant]
     Dosage: NEBULIZER
  12. ZOFRAN [Concomitant]
     Dosage: UNK UKN, UNK
  13. VITAMIN D [Concomitant]
     Dosage: UNK UKN, UNK
  14. LITHIUM CARBONATE [Concomitant]
     Dosage: UNK UKN, UNK
  15. SYNTHROID [Concomitant]
     Dosage: UNK UKN, UNK
  16. FENTANYL [Concomitant]
     Dosage: UNK UKN, UNK

REACTIONS (16)
  - Systemic lupus erythematosus [Unknown]
  - Coma [Unknown]
  - Nerve injury [Unknown]
  - Diabetes mellitus [Unknown]
  - Progressive multifocal leukoencephalopathy [Unknown]
  - Tuberculosis [Unknown]
  - Mental impairment [Unknown]
  - Rhinorrhoea [Unknown]
  - Bronchial disorder [Unknown]
  - Hallucination [Unknown]
  - Feeling abnormal [Unknown]
  - Confusional state [Unknown]
  - Gastritis [Unknown]
  - Vomiting [Unknown]
  - Nausea [Unknown]
  - Nasopharyngitis [Unknown]
